FAERS Safety Report 20590796 (Version 1)
Quarter: 2022Q1

REPORT INFORMATION
  Report Type: Spontaneous
  Country: US (occurrence: None)
  Receive Date: 20220314
  Receipt Date: 20220314
  Transmission Date: 20220423
  Serious: Yes (Death)
  Sender: FDA-Public Use
  Company Number: None

PATIENT
  Age: 29 Year
  Sex: Male

DRUGS (1)
  1. ZOLOFT [Suspect]
     Active Substance: SERTRALINE HYDROCHLORIDE
     Indication: Depression
     Dates: start: 20210810, end: 20210820

REACTIONS (7)
  - Insomnia [None]
  - Vomiting [None]
  - Therapy cessation [None]
  - Delusion [None]
  - Fatigue [None]
  - Completed suicide [None]
  - Treatment noncompliance [None]

NARRATIVE: CASE EVENT DATE: 20210810
